FAERS Safety Report 5316233-6 (Version None)
Quarter: 2007Q2

REPORT INFORMATION
  Report Type: 
  Country: None (occurrence: None)
  Receive Date: 20070503
  Receipt Date: 20070424
  Transmission Date: 20071010
  Serious: Yes (Other)
  Sender: FDA-Public Use
  Company Number: US-BOEHRINGER INGELHEIM PHARMACEUTICALS, INC.-2007-BP-05626BP

PATIENT
  Age: 2 Year
  Sex: Female

DRUGS (1)
  1. MIRAPEX [Suspect]
     Dosage: ~ 3 MG
     Route: 048
     Dates: start: 20070423, end: 20070423

REACTIONS (3)
  - ACCIDENTAL EXPOSURE [None]
  - LETHARGY [None]
  - OVERDOSE [None]
